FAERS Safety Report 9250333 (Version 1)
Quarter: 2013Q1

REPORT INFORMATION
  Report Type: Spontaneous
  Country: US (occurrence: None)
  Receive Date: 20130305
  Receipt Date: 20130305
  Transmission Date: 20140127
  Serious: Yes (Other)
  Sender: FDA-Public Use
  Company Number: 163-21880-12062823

PATIENT
  Age: 73 Year
  Sex: Male

DRUGS (5)
  1. REVLIMID (LENALIDOMIDE) [Suspect]
     Indication: CHRONIC LYMPHOCYTIC LEUKAEMIA
     Dosage: QD X 21D/2
     Route: 048
     Dates: start: 201201, end: 201202
  2. DEXAMETHASONE (DEXAMETHASONE) (UNKNOWN) [Concomitant]
     Dosage: 40 MG, WEEKLY, UNK
  3. RITUXAN (RITUXIMAB) (UNKNOWN) [Concomitant]
  4. LASIX (FUROSEMIDE) (UNKNOWN) [Concomitant]
  5. K-TABS (POTASSIUM) (UNKNOWN) [Concomitant]

REACTIONS (1)
  - Neutropenia [None]
